FAERS Safety Report 9468314 (Version 1)
Quarter: 2013Q3

REPORT INFORMATION
  Report Type: Spontaneous
  Country: FR (occurrence: FR)
  Receive Date: 20130821
  Receipt Date: 20130821
  Transmission Date: 20140515
  Serious: Yes (Life-Threatening, Hospitalization)
  Sender: FDA-Public Use
  Company Number: FR-JNJFOC-20130810789

PATIENT
  Age: 48 Year
  Sex: Male

DRUGS (1)
  1. TRAMADOL/PARACETAMOL BIOGARAN [Suspect]
     Indication: PAIN
     Dosage: 37.5 MG / 325 MG
     Route: 048
     Dates: start: 20130430, end: 20130614

REACTIONS (1)
  - Intestinal ischaemia [Unknown]
